FAERS Safety Report 5171107-9 (Version None)
Quarter: 2006Q4

REPORT INFORMATION
  Report Type: 
  Country: None (occurrence: None)
  Receive Date: 20061213
  Receipt Date: 20061207
  Transmission Date: 20070319
  Serious: Yes (Hospitalization)
  Sender: FDA-Public Use
  Company Number: CH-GLAXOSMITHKLINE-B0450254A

PATIENT
  Age: 73 Year
  Sex: Male

DRUGS (1)
  1. CEFUROXIME [Suspect]
     Indication: TONSILLITIS
     Route: 048
     Dates: start: 20061107, end: 20061108

REACTIONS (11)
  - AGITATION [None]
  - ANAPHYLACTIC SHOCK [None]
  - DEHYDRATION [None]
  - ERYTHEMA [None]
  - HYPERTENSION [None]
  - HYPOTENSION [None]
  - PRURITUS GENERALISED [None]
  - SKIN LESION [None]
  - TONGUE GEOGRAPHIC [None]
  - TONSILLITIS [None]
  - TYPE IV HYPERSENSITIVITY REACTION [None]
